FAERS Safety Report 7833266-6 (Version None)
Quarter: 2011Q4

REPORT INFORMATION
  Report Type: 
  Country: None (occurrence: None)
  Receive Date: 20111024
  Receipt Date: 20111013
  Transmission Date: 20120403
  Serious: Yes (Hospitalization)
  Sender: FDA-Public Use
  Company Number: ES-JNJFOC-20111007531

PATIENT
  Age: 54 Year
  Sex: Male

DRUGS (9)
  1. MAGNESIUM METAMIZOL [Concomitant]
     Indication: CANCER PAIN
     Route: 065
  2. OMEPRAZOLE [Concomitant]
     Indication: CANCER PAIN
     Route: 065
  3. ERLOTINIB HYDROCHLORIDE [Interacting]
     Indication: PRODUCT USED FOR UNKNOWN INDICATION
     Route: 065
  4. FENTANYL [Interacting]
     Indication: CANCER PAIN
     Route: 062
  5. IBUPROFEN [Concomitant]
     Indication: CANCER PAIN
     Route: 065
  6. FENTANYL [Interacting]
     Route: 062
  7. HYDROMORPHONE HCL [Suspect]
     Indication: PAIN
     Route: 048
  8. HYDROMORPHONE HCL [Suspect]
     Route: 048
  9. FENTANYL [Concomitant]
     Route: 048

REACTIONS (6)
  - INADEQUATE ANALGESIA [None]
  - VOMITING [None]
  - DRUG INTERACTION [None]
  - NAUSEA [None]
  - DISEASE PROGRESSION [None]
  - SOMNOLENCE [None]
